FAERS Safety Report 14670424 (Version 3)
Quarter: 2019Q1

REPORT INFORMATION
  Report Type: Report from Study
  Country: BR (occurrence: BR)
  Receive Date: 20180322
  Receipt Date: 20190121
  Transmission Date: 20190417
  Serious: Yes (Other)
  Sender: FDA-Public Use
  Company Number: PHHY2018BR041861

PATIENT
  Sex: Male
  Weight: 105 kg

DRUGS (3)
  1. COSENTYX [Suspect]
     Active Substance: SECUKINUMAB
     Indication: PSORIASIS
     Dosage: 300 MG, UNK
     Route: 058
     Dates: start: 20170705
  2. COSENTYX [Suspect]
     Active Substance: SECUKINUMAB
     Dosage: UNK
     Route: 065
     Dates: start: 20180115
  3. ZOLOFT [Concomitant]
     Active Substance: SERTRALINE HYDROCHLORIDE
     Indication: ANXIETY
     Dosage: 1 DF, STARTED 5 YEARS AGO
     Route: 048

REACTIONS (4)
  - Asthenia [Not Recovered/Not Resolved]
  - Urinary tract infection [Recovering/Resolving]
  - Bladder pain [Recovering/Resolving]
  - Nephrolithiasis [Recovering/Resolving]
